FAERS Safety Report 7053819-5 (Version None)
Quarter: 2010Q4

REPORT INFORMATION
  Report Type: 
  Country: None (occurrence: None)
  Receive Date: 20101020
  Receipt Date: 20101008
  Transmission Date: 20110411
  Serious: Yes (Hospitalization, Other)
  Sender: FDA-Public Use
  Company Number: US-AMGEN INC.-KDL444704

PATIENT

DRUGS (5)
  1. PROCRIT [Suspect]
     Indication: ANAEMIA
     Dosage: 40000 IU, Q2WK
     Route: 058
     Dates: start: 20010901
  2. PROCRIT [Suspect]
     Dosage: 40000 IU, Q2WK
     Route: 058
     Dates: start: 20010901
  3. DIGOXIN [Concomitant]
     Dosage: .125 MG, QD
     Route: 048
     Dates: start: 19950101
  4. FISH OIL [Concomitant]
     Dosage: 1000 MG, QD
     Route: 048
     Dates: start: 20070101
  5. CENTRUM SILVER [Concomitant]
     Dosage: UNK UNK, QD
     Route: 048
     Dates: start: 20070101

REACTIONS (11)
  - ARRHYTHMIA [None]
  - BLOOD IRON DECREASED [None]
  - CEREBROVASCULAR ACCIDENT [None]
  - FATIGUE [None]
  - INJECTION SITE ERYTHEMA [None]
  - INJECTION SITE PRURITUS [None]
  - INJECTION SITE SWELLING [None]
  - OEDEMA PERIPHERAL [None]
  - PAIN IN EXTREMITY [None]
  - THYROID DISORDER [None]
  - UNEVALUABLE EVENT [None]
